FAERS Safety Report 6526032-5 (Version None)
Quarter: 2010Q1

REPORT INFORMATION
  Report Type: 
  Country: None (occurrence: None)
  Receive Date: 20100104
  Receipt Date: 20091221
  Transmission Date: 20100710
  Serious: Yes (Other)
  Sender: FDA-Public Use
  Company Number: JP-MYLANLABS-2009S1021669

PATIENT
  Age: 31 Year
  Sex: Female

DRUGS (5)
  1. VENLAFAXINE [Interacting]
     Indication: MAJOR DEPRESSION
  2. VENLAFAXINE [Interacting]
  3. CLOMIPRAMINE [Suspect]
     Indication: MAJOR DEPRESSION
  4. CLOMIPRAMINE [Interacting]
  5. CLOMIPRAMINE [Interacting]

REACTIONS (7)
  - ABDOMINAL PAIN UPPER [None]
  - DELUSION [None]
  - DIZZINESS [None]
  - DRUG INTERACTION [None]
  - NAUSEA [None]
  - PALPITATIONS [None]
  - WITHDRAWAL SYNDROME [None]
